FAERS Safety Report 11126472 (Version 1)
Quarter: 2015Q2

REPORT INFORMATION
  Report Type: Spontaneous
  Country: US (occurrence: US)
  Receive Date: 20150520
  Receipt Date: 20150520
  Transmission Date: 20150821
  Serious: Yes (Hospitalization)
  Sender: FDA-Public Use
  Company Number: US-JNJFOC-20150508091

PATIENT
  Sex: Female

DRUGS (1)
  1. XARELTO [Suspect]
     Active Substance: RIVAROXABAN
     Indication: HYPERTENSION
     Route: 048
     Dates: start: 2012, end: 2013

REACTIONS (3)
  - Cerebrovascular accident [Unknown]
  - Coagulopathy [Unknown]
  - Product use issue [Unknown]

NARRATIVE: CASE EVENT DATE: 2012
